FAERS Safety Report 8594965-4 (Version None)
Quarter: 2012Q3

REPORT INFORMATION
  Report Type: 
  Country: None (occurrence: None)
  Receive Date: 20120815
  Receipt Date: 20120814
  Transmission Date: 20120928
  Serious: Yes (Other)
  Sender: FDA-Public Use
  Company Number: PHHY2012BR044575

PATIENT
  Sex: Male

DRUGS (6)
  1. SALINE [Concomitant]
     Dosage: 2 DF, DAILY
  2. BUDECORT [Concomitant]
     Indication: RHINITIS
     Dosage: UNK UKN, BID (2 TIMES DAILY)
  3. CITALOPRAM [Concomitant]
     Dosage: UNK (1 TIME IN NIGHT)
     Dates: start: 20100301
  4. ASPIRIN [Concomitant]
     Indication: ANTICOAGULANT THERAPY
     Dosage: 1 DF, UNK (1 TABLET AFTER LUNCH)
     Dates: start: 20100301
  5. OMEPRAZOLE [Concomitant]
     Indication: ABDOMINAL DISCOMFORT
     Dosage: 1 DF, UNK (1 TABLET IN MORNING)
     Dates: start: 20100301
  6. FORMOTEROL FUMARATE [Suspect]
     Indication: ASTHMA
     Dosage: UNK UKN, BID (2 TIMES DAILY)
     Dates: start: 20030101

REACTIONS (2)
  - CEREBROVASCULAR ACCIDENT [None]
  - GAIT DISTURBANCE [None]
